FAERS Safety Report 8468049 (Version 2)
Quarter: 2014Q1

REPORT INFORMATION
  Report Type: Report from Study
  Country: US (occurrence: US)
  Receive Date: 20120320
  Receipt Date: 20140122
  Transmission Date: 20141002
  Serious: Yes (Hospitalization)
  Sender: FDA-Public Use
  Company Number: US-GLAXOSMITHKLINE-A0970183A

PATIENT
  Age: 79 Year
  Sex: Male

DRUGS (10)
  1. OFATUMUMAB [Suspect]
     Indication: NON-HODGKIN^S LYMPHOMA
     Route: 042
     Dates: start: 20110921, end: 20111109
  2. LENALIDOMIDE [Suspect]
     Indication: NON-HODGKIN^S LYMPHOMA
     Route: 048
  3. MUCINEX [Concomitant]
     Dosage: 600MG TWICE PER DAY
     Route: 048
  4. PRILOSEC [Concomitant]
     Dosage: 20MG PER DAY
     Route: 048
  5. LASIX [Concomitant]
     Dosage: 20MG PER DAY
  6. ASPIRIN [Concomitant]
     Dosage: 81MG PER DAY
     Route: 048
  7. MULTIVITAMIN [Concomitant]
  8. SAW PALMETTO [Concomitant]
     Dosage: 160MG PER DAY
     Route: 048
  9. FINASTERIDE [Concomitant]
     Dosage: 5MG PER DAY
     Route: 048
  10. LIPITOR [Concomitant]
     Dosage: 20MG PER DAY
     Route: 048

REACTIONS (2)
  - Febrile neutropenia [Recovered/Resolved]
  - Pyrexia [Recovered/Resolved]
